FAERS Safety Report 7832342-1 (Version None)
Quarter: 2011Q4

REPORT INFORMATION
  Report Type: 
  Country: None (occurrence: None)
  Receive Date: 20111022
  Receipt Date: 20111011
  Transmission Date: 20120403
  Serious: Yes (Other)
  Sender: FDA-Public Use
  Company Number: US-BAYER-2011-049533

PATIENT
  Age: 20 Year
  Sex: Female
  Weight: 62 kg

DRUGS (6)
  1. FLEXERIL [Concomitant]
  2. YASMIN [Suspect]
     Dosage: UNK
     Dates: start: 20030401, end: 20071001
  3. ATIVAN [Concomitant]
  4. IBUPROFEN [Concomitant]
  5. YAZ [Suspect]
     Dosage: UNK
     Dates: start: 20030401, end: 20071001
  6. WELLBUTRIN [Concomitant]

REACTIONS (7)
  - CHOLECYSTITIS CHRONIC [None]
  - INJURY [None]
  - EMOTIONAL DISTRESS [None]
  - GALLBLADDER DISORDER [None]
  - GENERAL PHYSICAL HEALTH DETERIORATION [None]
  - ANXIETY [None]
  - PAIN [None]
